FAERS Safety Report 24302735 (Version 2)
Quarter: 2024Q3

REPORT INFORMATION
  Report Type: Spontaneous
  Country: US (occurrence: US)
  Receive Date: 20240910
  Receipt Date: 20240913
  Transmission Date: 20241017
  Serious: No
  Sender: SANOFI AVENTIS
  Company Number: US-SA-2024SA258191

PATIENT
  Age: 73 Year

DRUGS (1)
  1. PRIFTIN [Suspect]
     Active Substance: RIFAPENTINE
     Indication: Latent tuberculosis
     Dosage: 6 DF, QW
     Route: 048

REACTIONS (1)
  - Off label use [Unknown]
